FAERS Safety Report 7946793-8 (Version None)
Quarter: 2011Q4

REPORT INFORMATION
  Report Type: 
  Country: None (occurrence: None)
  Receive Date: 20111129
  Receipt Date: 20111118
  Transmission Date: 20120403
  Serious: Yes (Other)
  Sender: FDA-Public Use
  Company Number: GB-AMGEN-GBRSP2011061855

PATIENT
  Age: 24 Year
  Sex: Female

DRUGS (2)
  1. ENBREL [Suspect]
     Dosage: UNK
  2. PREDNISOLONE [Concomitant]
     Dosage: 40 MG, UNK

REACTIONS (5)
  - PAIN OF SKIN [None]
  - SKIN HYPERTROPHY [None]
  - SKIN REACTION [None]
  - DRUG INEFFECTIVE [None]
  - SKIN DISORDER [None]
